FAERS Safety Report 8984515 (Version 1)
Quarter: 2012Q4

REPORT INFORMATION
  Report Type: Spontaneous
  Country: JP (occurrence: None)
  Receive Date: 20121217
  Receipt Date: 20121217
  Transmission Date: 20130627
  Serious: Yes (Death, Hospitalization)
  Sender: FDA-Public Use
  Company Number: 2012VX005278

PATIENT
  Age: 9 Year
  Sex: Male
  Weight: 40 kg

DRUGS (8)
  1. HYDROCORTISONE [Suspect]
     Indication: LYMPHOBLASTIC LYMPHOMA
     Route: 037
  2. CYTARABINE [Suspect]
     Indication: LYMPHOBLASTIC LYMPHOMA
     Route: 037
  3. METHOTREXATE (METHOTREXATE) [Suspect]
     Indication: LYMPHOBLASTIC LYMPHOMA
     Route: 037
  4. PREDNISONE (PREDNISONE) [Suspect]
     Indication: LYMPHOBLASTIC LYMPHOMA
  5. VINCRISTINE [Suspect]
     Indication: LYMPHOBLASTIC LYMPHOMA
  6. CYCLOPHOSPHAMIDE [Suspect]
     Indication: LYMPHOBLASTIC LYMPHOMA
  7. DAUNORUBICIN [Suspect]
     Indication: LYMPHOBLASTIC LYMPHOMA
  8. L-ASPARAGINASE [Suspect]
     Indication: LYMPHOBLASTIC LYMPHOMA

REACTIONS (10)
  - Venoocclusive liver disease [None]
  - Neuropathy peripheral [None]
  - Pain [None]
  - Ascites [None]
  - Thrombocytopenia [None]
  - Stupor [None]
  - Bradycardia [None]
  - Haemorrhage intracranial [None]
  - Brain herniation [None]
  - Weight increased [None]
